FAERS Safety Report 6825906-5 (Version None)
Quarter: 2010Q3

REPORT INFORMATION
  Report Type: 
  Country: None (occurrence: None)
  Receive Date: 20100709
  Receipt Date: 20100623
  Transmission Date: 20110219
  Serious: Yes (Hospitalization)
  Sender: FDA-Public Use
  Company Number: US-JNJFOC-20100607931

PATIENT
  Sex: Male
  Weight: 92.53 kg

DRUGS (5)
  1. RISPERDAL [Suspect]
     Indication: POST-TRAUMATIC STRESS DISORDER
     Dosage: HALF TABLET OF 3 MG (1.5 MG TWICE IN A DAY)
     Route: 048
  2. RISPERDAL [Suspect]
     Indication: SCHIZOPHRENIA
     Dosage: HALF TABLET OF 3 MG (1.5 MG TWICE IN A DAY)
     Route: 048
  3. ZOLOFT [Concomitant]
     Indication: DEPRESSION
     Route: 048
  4. KLONOPIN [Concomitant]
     Indication: ANXIETY
     Dosage: 1 MG 1 EVERY 6 HOURS AS NECESSARY
     Route: 048
  5. METHADONE [Concomitant]
     Indication: DEPENDENCE
     Dosage: DOSE ONCE DAILY
     Route: 048

REACTIONS (1)
  - CHRONIC OBSTRUCTIVE PULMONARY DISEASE [None]
